FAERS Safety Report 5619599-2 (Version None)
Quarter: 2008Q1

REPORT INFORMATION
  Report Type: 
  Country: None (occurrence: None)
  Receive Date: 20080208
  Receipt Date: 20080108
  Transmission Date: 20080703
  Serious: No
  Sender: FDA-Public Use
  Company Number: US-BAYER-200811017NA

PATIENT
  Age: 50 Year
  Sex: Female
  Weight: 70 kg

DRUGS (3)
  1. MIRENA [Suspect]
     Indication: DRUG USE FOR UNKNOWN INDICATION
     Route: 015
     Dates: start: 20071219, end: 20080104
  2. CELEXA [Concomitant]
     Indication: DRUG USE FOR UNKNOWN INDICATION
  3. COPPER T [Concomitant]
     Indication: DRUG USE FOR UNKNOWN INDICATION
     Dates: start: 19750101

REACTIONS (2)
  - ANXIETY [None]
  - DEPRESSION [None]
